FAERS Safety Report 5447266-7 (Version None)
Quarter: 2007Q3

REPORT INFORMATION
  Report Type: 
  Country: None (occurrence: None)
  Receive Date: 20070910
  Receipt Date: 20070903
  Transmission Date: 20080115
  Serious: Yes (Other)
  Sender: FDA-Public Use
  Company Number: ES-SP-2007-03024

PATIENT
  Age: 60 Year
  Sex: Male

DRUGS (1)
  1. BCG  THERAPEUTICS [Suspect]
     Indication: TRANSITIONAL CELL CARCINOMA
     Dosage: 1 DOSE PER WEEK
     Route: 043

REACTIONS (5)
  - ASTHENIA [None]
  - CONJUNCTIVITIS [None]
  - POLYARTHRITIS [None]
  - PURULENT DISCHARGE [None]
  - PYREXIA [None]
